FAERS Safety Report 25378956 (Version 1)
Quarter: 2025Q2

REPORT INFORMATION
  Report Type: Spontaneous
  Country: US (occurrence: None)
  Receive Date: 20250529
  Receipt Date: 20250529
  Transmission Date: 20250717
  Serious: Yes (Disabling)
  Sender: FDA-CTU
  Company Number: None

PATIENT
  Age: 35 Year
  Sex: Female

DRUGS (1)
  1. CELEXA [Suspect]
     Active Substance: CITALOPRAM HYDROBROMIDE
     Indication: Panic disorder
     Route: 048
     Dates: start: 20070101, end: 20240901

REACTIONS (13)
  - Vision blurred [None]
  - Dizziness [None]
  - Electric shock sensation [None]
  - Myalgia [None]
  - Nausea [None]
  - Diarrhoea [None]
  - Palpitations [None]
  - Muscle twitching [None]
  - Chest pain [None]
  - Back pain [None]
  - Headache [None]
  - Tinnitus [None]
  - Withdrawal syndrome [None]

NARRATIVE: CASE EVENT DATE: 20240101
